FAERS Safety Report 8438147-5 (Version None)
Quarter: 2012Q2

REPORT INFORMATION
  Report Type: 
  Country: None (occurrence: None)
  Receive Date: 20120614
  Receipt Date: 20120601
  Transmission Date: 20120825
  Serious: Yes (Hospitalization)
  Sender: FDA-Public Use
  Company Number: DE-ROCHE-1071359

PATIENT
  Age: 54 Year
  Sex: Female
  Weight: 88.5 kg

DRUGS (7)
  1. VEMURAFENIB [Suspect]
     Dates: start: 20120404
  2. VEMURAFENIB [Suspect]
     Route: 048
     Dates: start: 20120505, end: 20120521
  3. VEMURAFENIB [Suspect]
     Indication: METASTATIC MALIGNANT MELANOMA
     Dates: start: 20120131, end: 20120326
  4. VEMURAFENIB [Suspect]
     Route: 048
     Dates: start: 20120420
  5. TORSEMIDE [Concomitant]
     Dates: start: 20120327
  6. TORSEMIDE [Concomitant]
     Dates: start: 20120522
  7. DESLORATADINE [Concomitant]
     Dates: start: 20120228

REACTIONS (2)
  - HYDROCEPHALUS [None]
  - HEADACHE [None]
